FAERS Safety Report 10557918 (Version 2)
Quarter: 2014Q4

REPORT INFORMATION
  Report Type: Spontaneous
  Country: US (occurrence: US)
  Receive Date: 20141031
  Receipt Date: 20141127
  Transmission Date: 20150529
  Serious: No
  Sender: FDA-Public Use
  Company Number: US-009507513-1410USA013881

PATIENT
  Sex: Female
  Weight: 93.2 kg

DRUGS (1)
  1. JANUMET [Suspect]
     Active Substance: METFORMIN HYDROCHLORIDE\SITAGLIPTIN PHOSPHATE
     Indication: METABOLIC SYNDROME
     Dosage: TOTAL DAILY DOSE: 100-2000 MG
     Route: 048
     Dates: start: 20140828

REACTIONS (2)
  - Muscular weakness [Recovered/Resolved]
  - Pain in extremity [Unknown]

NARRATIVE: CASE EVENT DATE: 2014
